FAERS Safety Report 4921274-4 (Version None)
Quarter: 2006Q1

REPORT INFORMATION
  Report Type: 
  Country: None (occurrence: None)
  Receive Date: 20060222
  Receipt Date: 20060222
  Transmission Date: 20060701
  Serious: Yes (Hospitalization, Other)
  Sender: FDA-Public Use
  Company Number: None

PATIENT
  Age: 40 Year
  Sex: Female
  Weight: 75.7507 kg

DRUGS (1)
  1. TRI-SPRINTEC [Suspect]
     Indication: ORAL CONTRACEPTION
     Dosage: ONE ONCE DAILY PO
     Route: 048
     Dates: start: 20030101, end: 20050724

REACTIONS (3)
  - DRUG INEFFECTIVE [None]
  - PREGNANCY ON ORAL CONTRACEPTIVE [None]
  - THERAPEUTIC RESPONSE UNEXPECTED WITH DRUG SUBSTITUTION [None]
